FAERS Safety Report 8770720 (Version 1)
Quarter: 2012Q4

REPORT INFORMATION
  Report Type: 
  Country: US (occurrence: US)
  Receive Date: 20120906
  Receipt Date: 20120906
  Transmission Date: 20130627
  Serious: Yes (Hospitalization)
  Sender: FDA-Public Use
  Company Number: US-BAYER-2012-091459

PATIENT
  Age: 20 Year
  Sex: Female
  Weight: 61.22 kg

DRUGS (8)
  1. YASMIN [Suspect]
  2. HUMALOG [Concomitant]
     Dosage: 100 U/mL, UNK
  3. INSULIN [Concomitant]
     Dosage: Basal rate 1 unit/hour via pump
  4. ANALGESICS [Concomitant]
     Indication: PAIN MANAGEMENT
  5. OXYCODONE [Concomitant]
     Dosage: every 4 prn for 7 days
  6. ROXICODONE [Concomitant]
     Dosage: every 8 for 7 days prn
  7. OXYCONTIN [Concomitant]
     Dosage: 20mg every 12 for three days
  8. OXYCONTIN [Concomitant]
     Dosage: 10mg every 12 hours for three days

REACTIONS (2)
  - Pulmonary embolism [Recovered/Resolved]
  - Deep vein thrombosis [None]
